FAERS Safety Report 8353817-5 (Version None)
Quarter: 2012Q2

REPORT INFORMATION
  Report Type: 
  Country: None (occurrence: None)
  Receive Date: 20120511
  Receipt Date: 20111206
  Transmission Date: 20120825
  Serious: No
  Sender: FDA-Public Use
  Company Number: US-GLAXOSMITHKLINE-A0957594A

PATIENT
  Age: 72 Year
  Sex: Female
  Weight: 47.3 kg

DRUGS (1)
  1. TYKERB [Suspect]
     Indication: BREAST CANCER
     Dosage: 1250MG PER DAY
     Route: 048
     Dates: start: 20110220

REACTIONS (4)
  - PERIPHERAL COLDNESS [None]
  - ABDOMINAL PAIN UPPER [None]
  - FEELING COLD [None]
  - DIARRHOEA [None]
